FAERS Safety Report 11842427 (Version 1)
Quarter: 2015Q4

REPORT INFORMATION
  Report Type: Spontaneous
  Country: None (occurrence: None)
  Receive Date: 20151216
  Receipt Date: 20151216
  Transmission Date: 20160305
  Serious: Yes (Life-Threatening, Hospitalization, Disabling, Other)
  Sender: FDA-Public Use
  Company Number: None

PATIENT
  Age: 65 Year
  Sex: Female
  Weight: 90.72 kg

DRUGS (1)
  1. HUMIRA [Suspect]
     Active Substance: ADALIMUMAB
     Indication: PSORIATIC ARTHROPATHY
     Dosage: GIVEN INTO/UNDER THE SKIN

REACTIONS (4)
  - Cauda equina syndrome [None]
  - Extradural abscess [None]
  - Bladder disorder [None]
  - Musculoskeletal discomfort [None]

NARRATIVE: CASE EVENT DATE: 20151007
